FAERS Safety Report 7540646-5 (Version None)
Quarter: 2011Q2

REPORT INFORMATION
  Report Type: 
  Country: None (occurrence: None)
  Receive Date: 20110603
  Receipt Date: 20110523
  Transmission Date: 20111010
  Serious: Yes (Other)
  Sender: FDA-Public Use
  Company Number: 2011P1006123

PATIENT
  Age: 53 Year
  Sex: Male
  Weight: 90.7194 kg

DRUGS (8)
  1. DEXEDRINE [Suspect]
     Indication: ATTENTION DEFICIT/HYPERACTIVITY DISORDER
     Dosage: 10 MG; Q5.5H; PO
     Route: 048
     Dates: start: 20100627
  2. DEXEDRINE [Suspect]
     Indication: DEPRESSION
     Dosage: 10 MG; Q5.5H; PO
     Route: 048
     Dates: start: 20100627
  3. ALPRAZOLAM [Concomitant]
  4. LEVOTHYROXINE SODIUM [Concomitant]
  5. OXYCODONE HCL [Concomitant]
  6. SEROQUEL [Concomitant]
  7. EFFEXOR 225 (VENLAFAXINE HYDROCHLORIDE) [Concomitant]
  8. TESTOSTERONE PILL INPLANT [Concomitant]

REACTIONS (5)
  - DEPRESSION [None]
  - MOOD ALTERED [None]
  - DRUG INEFFECTIVE [None]
  - AGITATION [None]
  - SUICIDAL IDEATION [None]
